FAERS Safety Report 20710081 (Version 1)
Quarter: 2022Q2

REPORT INFORMATION
  Report Type: Spontaneous
  Country: CH (occurrence: CH)
  Receive Date: 20220414
  Receipt Date: 20220414
  Transmission Date: 20220721
  Serious: Yes (Other)
  Sender: FDA-Public Use
  Company Number: CH-MYLANLABS-2022M1027708

PATIENT
  Age: 65 Year
  Sex: Female

DRUGS (6)
  1. CLARITHROMYCIN [Suspect]
     Active Substance: CLARITHROMYCIN
     Indication: Infective tenosynovitis
     Dosage: 500 MILLIGRAM, BID
     Route: 048
  2. PREDNISOLONE [Suspect]
     Active Substance: PREDNISOLONE
     Indication: Infective tenosynovitis
     Dosage: 30 MILLIGRAM, QD
     Route: 065
  3. METHOTREXATE [Suspect]
     Active Substance: METHOTREXATE
     Indication: Infective tenosynovitis
     Dosage: 15 MILLIGRAM, QW
     Route: 058
  4. ETHAMBUTOL [Suspect]
     Active Substance: ETHAMBUTOL HYDROCHLORIDE
     Indication: Infective tenosynovitis
     Dosage: 600 MILLIGRAM, QD
     Route: 048
  5. RIFAMPIN [Suspect]
     Active Substance: RIFAMPIN
     Indication: Infective tenosynovitis
     Dosage: 450 MILLIGRAM, QD
     Route: 048
  6. AZITHROMYCIN [Suspect]
     Active Substance: AZITHROMYCIN
     Indication: Infective tenosynovitis
     Dosage: 350 MILLIGRAM, QD
     Route: 048

REACTIONS (1)
  - Drug ineffective [Unknown]
